FAERS Safety Report 9922437 (Version 2)
Quarter: 2014Q1

REPORT INFORMATION
  Report Type: Spontaneous
  Country: US (occurrence: US)
  Receive Date: 20140225
  Receipt Date: 20140303
  Transmission Date: 20141002
  Serious: Yes (Other)
  Sender: FDA-Public Use
  Company Number: CHPA2014US003004

PATIENT
  Age: 81 Year
  Sex: Female

DRUGS (4)
  1. EXCEDRIN TENSION HEADACHE [Suspect]
     Indication: HEADACHE
     Dosage: 2 DF, QD
     Route: 048
     Dates: end: 1988
  2. EXCEDRIN TENSION HEADACHE [Suspect]
     Indication: PAIN
  3. EXCEDRIN EXTRA STRENGTH [Suspect]
     Indication: HEADACHE
     Dosage: 2 DF, UNK
     Route: 065
     Dates: end: 1989
  4. EXCEDRIN EXTRA STRENGTH [Suspect]
     Indication: PAIN

REACTIONS (5)
  - Myocardial infarction [Recovered/Resolved]
  - Nerve compression [Recovered/Resolved]
  - Muscle tightness [Recovered/Resolved]
  - Myalgia [Recovered/Resolved]
  - Abdominal discomfort [Recovered/Resolved]
